FAERS Safety Report 9554449 (Version 3)
Quarter: 2014Q2

REPORT INFORMATION
  Report Type: Report from Study
  Country: US (occurrence: GB)
  Receive Date: 20130925
  Receipt Date: 20140501
  Transmission Date: 20141212
  Serious: Yes (Other)
  Sender: FDA-Public Use
  Company Number: US-ABBVIE-13P-163-1110240-00

PATIENT
  Age: 34 Year
  Sex: Female

DRUGS (4)
  1. KALETRA [Suspect]
     Indication: ANTIRETROVIRAL THERAPY
     Dosage: 4 TABLETS DAILY
     Route: 048
     Dates: start: 20130201, end: 20130214
  2. TRUVADA [Suspect]
     Indication: ANTIRETROVIRAL THERAPY
     Route: 048
     Dates: start: 20130201, end: 20130214
  3. TRUVADA [Suspect]
     Route: 048
     Dates: start: 20130319
  4. ISENTRESS [Suspect]
     Indication: ANTIRETROVIRAL THERAPY
     Dosage: 400 MG DAILY
     Route: 048
     Dates: start: 20130319

REACTIONS (3)
  - Pre-eclampsia [Unknown]
  - Nausea [Unknown]
  - Vomiting [Unknown]
